FAERS Safety Report 9462389 (Version 2)
Quarter: 2013Q3

REPORT INFORMATION
  Report Type: Report from Study
  Country: DO (occurrence: DO)
  Receive Date: 20130816
  Receipt Date: 20130822
  Transmission Date: 20140515
  Serious: Yes (Death)
  Sender: FDA-Public Use
  Company Number: DO-ABBOTT-13P-279-1133623-00

PATIENT
  Sex: Female

DRUGS (1)
  1. HUMIRA [Suspect]
     Indication: CROHN^S DISEASE

REACTIONS (5)
  - Crohn^s disease [Fatal]
  - Pneumonia [Fatal]
  - Malnutrition [Fatal]
  - Anaemia [Fatal]
  - Hepatic failure [Fatal]
